FAERS Safety Report 15567336 (Version 2)
Quarter: 2019Q1

REPORT INFORMATION
  Report Type: Spontaneous
  Country: HU (occurrence: HU)
  Receive Date: 20181030
  Receipt Date: 20190305
  Transmission Date: 20190417
  Serious: Yes (Disabling, Other)
  Sender: FDA-Public Use
  Company Number: HU-ENDO PHARMACEUTICALS INC-2018-042511

PATIENT
  Age: 45 Year
  Sex: Male

DRUGS (1)
  1. AVEED [Suspect]
     Active Substance: TESTOSTERONE UNDECANOATE
     Indication: HORMONE REPLACEMENT THERAPY
     Dosage: 1000 MG, EVERY 3 MONTHS
     Route: 030

REACTIONS (10)
  - Abdominal pain lower [Unknown]
  - Insomnia [Unknown]
  - Penile pain [Unknown]
  - Intentional self-injury [Unknown]
  - Groin pain [Unknown]
  - Nervousness [Unknown]
  - Aggression [Unknown]
  - Spontaneous penile erection [Unknown]
  - Agitation [Unknown]
  - Fatigue [Unknown]
